FAERS Safety Report 19157542 (Version 1)
Quarter: 2021Q2

REPORT INFORMATION
  Report Type: Spontaneous
  Country: US (occurrence: US)
  Receive Date: 20210420
  Receipt Date: 20210420
  Transmission Date: 20210717
  Serious: Yes (Other)
  Sender: FDA-Public Use
  Company Number: US-SUN PHARMACEUTICAL INDUSTRIES LTD-2021R1-292101

PATIENT
  Age: 34 Year
  Sex: Female

DRUGS (1)
  1. ASPIRIN. [Suspect]
     Active Substance: ASPIRIN
     Indication: GESTATIONAL HYPERTENSION
     Dosage: UNK
     Route: 065

REACTIONS (2)
  - Live birth [Unknown]
  - Exposure during pregnancy [Unknown]
